FAERS Safety Report 20903184 (Version 2)
Quarter: 2022Q2

REPORT INFORMATION
  Report Type: Report from Study
  Country: US (occurrence: US)
  Receive Date: 20220601
  Receipt Date: 20220627
  Transmission Date: 20220720
  Serious: No
  Sender: FDA-Public Use
  Company Number: US-JAZZ-2022-US-015802

PATIENT
  Sex: Female

DRUGS (14)
  1. XYREM [Suspect]
     Active Substance: SODIUM OXYBATE
     Indication: Narcolepsy
     Dosage: UNK
     Route: 048
  2. XYREM [Suspect]
     Active Substance: SODIUM OXYBATE
     Indication: Cataplexy
  3. XYREM [Suspect]
     Active Substance: SODIUM OXYBATE
     Indication: Somnolence
  4. CLARITIN EXTRA [Concomitant]
     Dosage: UNK
     Dates: start: 19990101
  5. LEVONOR [ETHINYLESTRADIOL;LEVONORGESTREL] [Concomitant]
     Dosage: UNK
     Dates: start: 19990101
  6. PROVENTIL HFA [Concomitant]
     Active Substance: ALBUTEROL SULFATE
     Dosage: 90 MCG INHALER
     Dates: start: 19990101
  7. COENZYME Q10 [Concomitant]
     Active Substance: DIETARY SUPPLEMENT\UBIDECARENONE
     Dosage: 100 MG CAPSULE
     Dates: start: 20161001
  8. VITAMIN D3 [Concomitant]
     Active Substance: CHOLECALCIFEROL
     Dosage: 2,000 UNIT SOFTGEL
     Dates: start: 20160101
  9. ALEVE [Concomitant]
     Active Substance: NAPROXEN SODIUM
     Dosage: 220 MG CAPLET
     Dates: start: 20161001
  10. QSYMIA [Concomitant]
     Active Substance: PHENTERMINE HYDROCHLORIDE\TOPIRAMATE
     Dosage: UNK
     Dates: start: 20181208
  11. RYBELSUS [Concomitant]
     Active Substance: SEMAGLUTIDE
  12. RYBELSUS [Concomitant]
     Active Substance: SEMAGLUTIDE
     Dosage: 0000
     Dates: start: 20211101
  13. OMEPRAZOLE [Concomitant]
     Active Substance: OMEPRAZOLE
  14. OMEPRAZOLE [Concomitant]
     Active Substance: OMEPRAZOLE
     Dosage: 0000
     Dates: start: 20220501

REACTIONS (2)
  - Product administration interrupted [Unknown]
  - Product dose omission issue [Unknown]
